FAERS Safety Report 7716619-6 (Version None)
Quarter: 2011Q3

REPORT INFORMATION
  Report Type: 
  Country: None (occurrence: None)
  Receive Date: 20110829
  Receipt Date: 20110819
  Transmission Date: 20111222
  Serious: Yes (Other)
  Sender: FDA-Public Use
  Company Number: US-ASTRAZENECA-2011SE49963

PATIENT
  Age: 48 Year
  Sex: Male
  Weight: 111.1 kg

DRUGS (2)
  1. TRIZOSIN [Concomitant]
     Indication: HYPERTENSION
     Route: 048
     Dates: start: 20110601
  2. SEROQUEL [Suspect]
     Route: 048
     Dates: start: 20110101, end: 20110301

REACTIONS (5)
  - HEPATITIS C [None]
  - WEIGHT INCREASED [None]
  - DRUG HYPERSENSITIVITY [None]
  - HYPERTENSION [None]
  - MUSCLE RIGIDITY [None]
